FAERS Safety Report 8952842 (Version 1)
Quarter: 2012Q4

REPORT INFORMATION
  Report Type: 
  Country: IT (occurrence: IT)
  Receive Date: 20121203
  Receipt Date: 20121203
  Transmission Date: 20130627
  Serious: Yes (Other)
  Sender: FDA-Public Use
  Company Number: IT-009507513-1211ITA011400

PATIENT
  Age: 58 Year
  Sex: Female

DRUGS (1)
  1. ISENTRESS [Suspect]
     Indication: ACUTE HIV INFECTION
     Dosage: 800 mg, qd
     Route: 048
     Dates: start: 20121116, end: 20121116

REACTIONS (2)
  - Pruritus generalised [Recovering/Resolving]
  - Diarrhoea [Recovering/Resolving]
